FAERS Safety Report 13234555 (Version 3)
Quarter: 2017Q2

REPORT INFORMATION
  Report Type: Spontaneous
  Country: US (occurrence: US)
  Receive Date: 20170215
  Receipt Date: 20170404
  Transmission Date: 20170830
  Serious: No
  Sender: FDA-Public Use
  Company Number: US-PFIZER INC-2017023620

PATIENT
  Age: 65 Year
  Sex: Female
  Weight: 99.77 kg

DRUGS (13)
  1. ERGOCALCIFEROL. [Concomitant]
     Active Substance: ERGOCALCIFEROL
     Dosage: UNK
  2. VICOPROFEN [Concomitant]
     Active Substance: HYDROCODONE BITARTRATE\IBUPROFEN
     Dosage: UNK, AS NEEDED
  3. SUTENT [Suspect]
     Active Substance: SUNITINIB MALATE
     Indication: PANCREATIC NEUROENDOCRINE TUMOUR METASTATIC
     Dosage: 37.5 MG, DAILY
     Dates: start: 20170301
  4. ALLOPURINOL. [Concomitant]
     Active Substance: ALLOPURINOL
     Dosage: UNK
  5. FERROUS SULFATE. [Concomitant]
     Active Substance: FERROUS SULFATE
     Dosage: UNK
  6. CHLORTALIDONE [Concomitant]
     Active Substance: CHLORTHALIDONE
     Dosage: UNK
  7. POTASSIUM CHLORIDE. [Concomitant]
     Active Substance: POTASSIUM CHLORIDE
     Dosage: UNK
  8. FOLTX [Concomitant]
     Active Substance: CYANOCOBALAMIN CO-57\FOLIC ACID\PYRIDOXINE HYDROCHLORIDE
     Dosage: UNK
  9. LANREOTIDE [Concomitant]
     Active Substance: LANREOTIDE
     Dosage: UNK, MONTHLY
  10. OXYCODONE [Concomitant]
     Active Substance: OXYCODONE
     Dosage: UNK
  11. SYNTHROID [Concomitant]
     Active Substance: LEVOTHYROXINE SODIUM
     Dosage: UNK
  12. VITAMIN B12 [Concomitant]
     Active Substance: CYANOCOBALAMIN
     Dosage: UNK
  13. LIPITOR [Concomitant]
     Active Substance: ATORVASTATIN CALCIUM
     Dosage: UNK

REACTIONS (13)
  - Fatigue [Unknown]
  - Dysgeusia [Unknown]
  - Epistaxis [Unknown]
  - Malaise [Unknown]
  - Ageusia [Unknown]
  - Throat irritation [Unknown]
  - Weight decreased [Unknown]
  - Abdominal pain upper [Unknown]
  - Headache [Unknown]
  - Stomatitis [Unknown]
  - Dry mouth [Unknown]
  - Diarrhoea [Unknown]
  - Dyspepsia [Unknown]
